FAERS Safety Report 5116474-7 (Version None)
Quarter: 2006Q3

REPORT INFORMATION
  Report Type: 
  Country: None (occurrence: None)
  Receive Date: 20060928
  Receipt Date: 20060806
  Transmission Date: 20061208
  Serious: Yes (Hospitalization)
  Sender: FDA-Public Use
  Company Number: NLWYE556207AUG06

PATIENT
  Sex: Male

DRUGS (2)
  1. ENBREL [Suspect]
     Indication: DRUG USE FOR UNKNOWN INDICATION
     Dates: start: 20050801
  2. ENBREL [Suspect]
     Dates: start: 20060901

REACTIONS (2)
  - AMYLOIDOSIS [None]
  - BLOOD CREATININE INCREASED [None]
